FAERS Safety Report 7160705-9 (Version None)
Quarter: 2010Q4

REPORT INFORMATION
  Report Type: 
  Country: None (occurrence: None)
  Receive Date: 20101214
  Receipt Date: 20091211
  Transmission Date: 20110411
  Serious: No
  Sender: FDA-Public Use
  Company Number: US-AMGEN-KDL379982

PATIENT

DRUGS (3)
  1. ENBREL [Suspect]
     Indication: RHEUMATOID ARTHRITIS
     Dosage: 50 MG, QWK
     Route: 058
     Dates: start: 20080201
  2. HYDROXYCHLOROQUINE SULFATE [Concomitant]
     Dosage: UNK UNK, UNK
  3. METHOTREXATE [Concomitant]
     Dosage: 2.5 MG, QWK
     Route: 048

REACTIONS (10)
  - INJECTION SITE HAEMATOMA [None]
  - NASOPHARYNGITIS [None]
  - OCULAR HYPERAEMIA [None]
  - RASH [None]
  - RASH ERYTHEMATOUS [None]
  - RHINORRHOEA [None]
  - SINUSITIS [None]
  - UPPER RESPIRATORY TRACT CONGESTION [None]
  - VERTIGO [None]
  - WHITE BLOOD CELL COUNT DECREASED [None]
